FAERS Safety Report 18396230 (Version 1)
Quarter: 2020Q4

REPORT INFORMATION
  Report Type: Spontaneous
  Country: US (occurrence: US)
  Receive Date: 20201019
  Receipt Date: 20201019
  Transmission Date: 20210114
  Serious: Yes (Hospitalization, Other)
  Sender: FDA-Public Use
  Company Number: US-ROCHE-2696215

PATIENT
  Age: 85 Year
  Sex: Female

DRUGS (1)
  1. ESBRIET [Suspect]
     Active Substance: PIRFENIDONE
     Indication: IDIOPATHIC PULMONARY FIBROSIS
     Dosage: THERAPY ONGOING:YES
     Route: 048
     Dates: start: 20200309

REACTIONS (2)
  - Arthropod bite [Unknown]
  - Rash [Unknown]

NARRATIVE: CASE EVENT DATE: 20200909
